FAERS Safety Report 13372283 (Version 1)
Quarter: 2017Q1

REPORT INFORMATION
  Report Type: Spontaneous
  Country: EG (occurrence: EG)
  Receive Date: 20170327
  Receipt Date: 20170327
  Transmission Date: 20170429
  Serious: Yes (Other)
  Sender: FDA-Public Use
  Company Number: EG-ACCORD-049492

PATIENT
  Age: 55 Year
  Sex: Female
  Weight: 65 kg

DRUGS (11)
  1. CAPTOPRIL. [Concomitant]
     Active Substance: CAPTOPRIL
     Indication: HYPERTENSION
     Route: 048
  2. MIDAZOLAM [Concomitant]
     Active Substance: MIDAZOLAM HYDROCHLORIDE
     Route: 042
  3. BUPIVACAINE. [Concomitant]
     Active Substance: BUPIVACAINE
     Dosage: STRENGTH: 0.25%
  4. ROCURONIUM [Interacting]
     Active Substance: ROCURONIUM BROMIDE
     Indication: ENDOTRACHEAL INTUBATION
  5. AMLODIPINE [Concomitant]
     Active Substance: AMLODIPINE BESYLATE
     Indication: HYPERTENSION
  6. FENTANYL. [Concomitant]
     Active Substance: FENTANYL
     Indication: INDUCTION OF ANAESTHESIA
     Dosage: 2 MCG/KG BODY WEIGHT ?ALSO RECEIVED 25 MCG BOLUSES OF FENTANYL
     Route: 042
  7. ISOFLURANE. [Concomitant]
     Active Substance: ISOFLURANE
     Indication: ANAESTHESIA
     Dosage: 1.0-1.5% IN 40 % OXYGEN-ENRICHED AIR
     Route: 055
  8. SIMVASTATIN. [Suspect]
     Active Substance: SIMVASTATIN
     Indication: HYPERCHOLESTEROLAEMIA
  9. CALCIUM CHLORIDE ANHYDROUS/POTASSIUM CHLORIDE/SODIUM LACTATE [Concomitant]
     Indication: URINE OUTPUT
     Route: 042
  10. PROPOFOL. [Concomitant]
     Active Substance: PROPOFOL
     Indication: INDUCTION OF ANAESTHESIA
     Dosage: 2 MG/KG BODY WEIGHT?ALSO RECEIVED I. V. PROPOFOL 30 MG
  11. LIDOCAINE. [Concomitant]
     Active Substance: LIDOCAINE
     Indication: LOCAL ANAESTHESIA
     Dosage: STRENGTH: 1 %

REACTIONS (4)
  - Unresponsive to stimuli [Unknown]
  - Potentiating drug interaction [Unknown]
  - Delayed recovery from anaesthesia [Unknown]
  - Muscle disorder [Unknown]
